FAERS Safety Report 8272342-3 (Version None)
Quarter: 2012Q2

REPORT INFORMATION
  Report Type: 
  Country: None (occurrence: None)
  Receive Date: 20120410
  Receipt Date: 20120404
  Transmission Date: 20120825
  Serious: Yes (Hospitalization)
  Sender: FDA-Public Use
  Company Number: US-CELGENEUS-163-21880-12040593

PATIENT
  Sex: Female
  Weight: 90.8 kg

DRUGS (5)
  1. HYDROCODONE BITARTRATE AND ACETAMINOPHEN [Concomitant]
     Dosage: 7.5-500MG
     Route: 065
  2. HYDROXYZINE [Concomitant]
     Dosage: 50 MILLICURIES
     Route: 065
  3. GABAPENTIN [Concomitant]
     Dosage: 600 MILLIGRAM
     Route: 065
  4. REVLIMID [Suspect]
     Indication: MULTIPLE MYELOMA
     Dosage: 25 MILLIGRAM
     Route: 048
     Dates: start: 20111031, end: 20120313
  5. GABAPENTIN [Concomitant]
     Dosage: 300 MILLIGRAM
     Route: 065

REACTIONS (3)
  - WEIGHT INCREASED [None]
  - OEDEMA PERIPHERAL [None]
  - PAIN [None]
